FAERS Safety Report 11982588 (Version 1)
Quarter: 2016Q1

REPORT INFORMATION
  Report Type: Report from Study
  Country: CA (occurrence: CA)
  Receive Date: 20160201
  Receipt Date: 20160201
  Transmission Date: 20160526
  Serious: Yes (Death, Other)
  Sender: FDA-Public Use
  Company Number: PHHY2011CA87031

PATIENT
  Age: 71 Year
  Sex: Male

DRUGS (5)
  1. AFINITOR [Suspect]
     Active Substance: EVEROLIMUS
     Dosage: 5 MG, QD
     Route: 048
     Dates: start: 2013, end: 20140630
  2. AFINITOR [Suspect]
     Active Substance: EVEROLIMUS
     Indication: METASTATIC CARCINOID TUMOUR
     Dosage: 5 MG, EVERY DAY
     Route: 048
     Dates: start: 20110911, end: 201110
  3. AFINITOR [Suspect]
     Active Substance: EVEROLIMUS
     Dosage: 5 MG, EVERY DAY
     Route: 048
     Dates: start: 20111026, end: 20121201
  4. AFINITOR [Suspect]
     Active Substance: EVEROLIMUS
     Dosage: 20 MG, DAILY
     Route: 048
  5. AFINITOR [Suspect]
     Active Substance: EVEROLIMUS
     Dosage: 10 MG, EVERY DAY
     Route: 048
     Dates: start: 20111021

REACTIONS (7)
  - Rash [Unknown]
  - Product use issue [Unknown]
  - Oral herpes [Unknown]
  - Blood glucose increased [Recovered/Resolved]
  - Death [Fatal]
  - Malignant neoplasm progression [Unknown]
  - Drug ineffective [Unknown]

NARRATIVE: CASE EVENT DATE: 201409
